FAERS Safety Report 5381496-8 (Version None)
Quarter: 2007Q3

REPORT INFORMATION
  Report Type: 
  Country: None (occurrence: None)
  Receive Date: 20070705
  Receipt Date: 20070705
  Transmission Date: 20080115
  Serious: Yes (Hospitalization)
  Sender: FDA-Public Use
  Company Number: None

PATIENT
  Age: 58 Year
  Sex: Male
  Weight: 63 kg

DRUGS (1)
  1. CETUXIMAB [Suspect]
     Indication: NON-SMALL CELL LUNG CANCER
     Dosage: 250MG/M2 425MG WEEKLY IV
     Route: 042
     Dates: start: 20070613, end: 20070627

REACTIONS (5)
  - CULTURE URINE POSITIVE [None]
  - DISEASE PROGRESSION [None]
  - DYSPNOEA [None]
  - PERFORMANCE STATUS DECREASED [None]
  - PYREXIA [None]
